FAERS Safety Report 8013727-X (Version None)
Quarter: 2011Q4

REPORT INFORMATION
  Report Type: 
  Country: None (occurrence: None)
  Receive Date: 20111229
  Receipt Date: 20111219
  Transmission Date: 20120403
  Serious: Yes (Other)
  Sender: FDA-Public Use
  Company Number: US-ELI_LILLY_AND_COMPANY-US201011001658

PATIENT
  Sex: Female

DRUGS (36)
  1. FORTEO [Suspect]
     Dosage: 20 UG, DAILY (1/D)
     Route: 065
  2. FORTEO [Suspect]
     Dosage: 20 UG, QD
     Route: 065
  3. OXYBUTYNIN [Concomitant]
  4. SIMVASTATIN [Concomitant]
  5. PHENERGAN [Concomitant]
     Dosage: UNK, AS NEEDED
  6. CELEBREX [Concomitant]
  7. FORTEO [Suspect]
     Indication: OSTEOPOROSIS
     Dosage: 20 UG, DAILY (1/D)
     Route: 065
     Dates: start: 20100601
  8. FORTEO [Suspect]
     Dosage: 20 UG, QD
  9. SYNTHROID [Concomitant]
  10. FORTEO [Suspect]
     Dosage: 20 UG, QD
  11. FORTEO [Suspect]
     Dosage: 20 UG, QD
  12. STOOL SOFTENER [Concomitant]
  13. PAXIL [Concomitant]
  14. MULTI-VITAMIN [Concomitant]
     Dosage: UNK, DAILY (1/D)
  15. PLAVIX [Concomitant]
  16. TORADOL [Concomitant]
     Dosage: UNK, AS NEEDED
  17. HYDROCODONE [Concomitant]
  18. NEXIUM [Concomitant]
  19. VITAMIN D [Concomitant]
  20. WELLBUTRIN [Concomitant]
  21. FORTEO [Suspect]
     Dosage: 20 UG, QD
     Route: 065
  22. ASPIRIN [Concomitant]
  23. VITAMIN B-12 [Concomitant]
  24. CLONAZEPAM [Concomitant]
  25. LAMICTAL [Concomitant]
  26. FIORICET [Concomitant]
     Dosage: UNK, AS NEEDED
  27. CALCIUM ACETATE [Concomitant]
  28. WELLBATRIN [Concomitant]
  29. ABILIFY [Concomitant]
  30. COGENTIN [Concomitant]
  31. HYDROMORPHONE HCL [Concomitant]
     Dosage: UNK, AS NEEDED
  32. FORTEO [Suspect]
     Dosage: 20 UG, QD
  33. METOPROLOL SUCCINATE [Concomitant]
  34. RANITIDINE [Concomitant]
  35. TRAZODONE HCL [Concomitant]
  36. VITAMIN E /00110501/ [Concomitant]

REACTIONS (13)
  - INJECTION SITE HAEMATOMA [None]
  - CEREBROVASCULAR ACCIDENT [None]
  - FALL [None]
  - DIZZINESS [None]
  - UPPER LIMB FRACTURE [None]
  - INJECTION SITE PAIN [None]
  - SPEECH DISORDER [None]
  - WEIGHT INCREASED [None]
  - PAIN [None]
  - BONE PAIN [None]
  - MYALGIA [None]
  - TOOTH INJURY [None]
  - TOOTH FRACTURE [None]
